FAERS Safety Report 24074385 (Version 16)
Quarter: 2025Q1

REPORT INFORMATION
  Report Type: Report from Study
  Country: MX (occurrence: MX)
  Receive Date: 20240710
  Receipt Date: 20250331
  Transmission Date: 20250409
  Serious: Yes (Disabling, Other)
  Sender: NOVARTIS
  Company Number: MX-002147023-NVSC2024MX141969

PATIENT
  Age: 49 Year
  Sex: Female
  Weight: 83 kg

DRUGS (14)
  1. KISQALI [Suspect]
     Active Substance: RIBOCICLIB
     Indication: Breast cancer
     Dosage: 600 MG, QD (3 OF 200 MG)
     Route: 048
     Dates: start: 20230725
  2. KISQALI [Suspect]
     Active Substance: RIBOCICLIB
     Indication: Metastases to ovary
     Dosage: 600 MG, QD (3 OF 200 MG)
     Route: 048
     Dates: start: 202307
  3. KISQALI [Suspect]
     Active Substance: RIBOCICLIB
     Dosage: 3 DOSAGE FORM, QD (200 MG)
     Route: 048
  4. KISQALI [Suspect]
     Active Substance: RIBOCICLIB
     Dosage: 3 DOSAGE FORM (200 MG), QD
     Route: 048
  5. KISQALI [Suspect]
     Active Substance: RIBOCICLIB
     Dosage: 3 DOSAGE FORM, QD (200 MG)
     Route: 048
     Dates: start: 20240822
  6. KISQALI [Suspect]
     Active Substance: RIBOCICLIB
     Dosage: 3 DOSAGE FORM, QD (200 MG)
     Route: 048
     Dates: start: 20250314
  7. LETROZOLE [Suspect]
     Active Substance: LETROZOLE
     Indication: Product used for unknown indication
     Dosage: 1 DOSAGE FORM, QD
     Route: 048
     Dates: start: 202307, end: 202402
  8. LETROZOLE [Suspect]
     Active Substance: LETROZOLE
     Dosage: 1 DOSAGE FORM, BID
     Route: 048
  9. ALPRAZOLAM [Concomitant]
     Active Substance: ALPRAZOLAM
     Indication: Insomnia
     Dosage: 1 DOSAGE FORM, TABLET, QD (PSICOFARMA)
     Route: 048
     Dates: start: 2021
  10. ALPRAZOLAM [Concomitant]
     Active Substance: ALPRAZOLAM
     Dosage: 0.25 MG, QD (1 OF 0.25 MG, TABLET)
     Route: 048
     Dates: start: 202108
  11. EXEMESTANE [Concomitant]
     Active Substance: EXEMESTANE
     Indication: Hormone level abnormal
     Dosage: 1 DOSAGE FORM, QD 1 OF 0.25 MG (TABLET)
     Route: 048
     Dates: start: 202307
  12. ACEMETACIN [Concomitant]
     Active Substance: ACEMETACIN
     Indication: Arthralgia
     Dosage: 180 MG, QD (CAPSULE, 2 OF 90 MG
     Route: 048
     Dates: start: 202108
  13. OMEPRAZOLE [Concomitant]
     Active Substance: OMEPRAZOLE
     Indication: Gastrointestinal disorder
     Dosage: 1 DOSAGE FORM, QD (CAPSULE, 20 MG QD)
     Route: 048
     Dates: start: 202307
  14. SITAGLIPTIN [Concomitant]
     Active Substance: SITAGLIPTIN
     Indication: Diabetes mellitus
     Dosage: 1 DOSAGE FORM, QD (OF 850 MG)
     Route: 048
     Dates: start: 202408, end: 20250207

REACTIONS (52)
  - Fall [Recovered/Resolved]
  - Neuromyopathy [Recovering/Resolving]
  - Gait inability [Recovered/Resolved]
  - Hypoaesthesia [Recovering/Resolving]
  - Weight decreased [Unknown]
  - Type 2 diabetes mellitus [Not Recovered/Not Resolved]
  - Leukopenia [Unknown]
  - Nausea [Recovered/Resolved]
  - Blood glucose increased [Recovering/Resolving]
  - Glucose tolerance impaired [Not Recovered/Not Resolved]
  - Throat irritation [Recovered/Resolved]
  - Adverse food reaction [Not Recovered/Not Resolved]
  - Gastrooesophageal reflux disease [Recovered/Resolved]
  - Weight increased [Recovering/Resolving]
  - Emotional distress [Unknown]
  - Road traffic accident [Unknown]
  - Spinal column injury [Unknown]
  - Increased appetite [Recovered/Resolved]
  - Anxiety [Recovered/Resolved]
  - Depressed mood [Unknown]
  - Stress [Not Recovered/Not Resolved]
  - Pruritus [Recovered/Resolved]
  - Arthralgia [Recovering/Resolving]
  - Mobility decreased [Unknown]
  - Somnolence [Recovered/Resolved]
  - Nausea [Recovered/Resolved]
  - Alopecia [Unknown]
  - Fatigue [Recovered/Resolved]
  - Gastritis [Not Recovered/Not Resolved]
  - Depression [Recovered/Resolved]
  - Insulin resistance [Not Recovered/Not Resolved]
  - Gastritis bacterial [Unknown]
  - Anxiety [Unknown]
  - Depression [Unknown]
  - Gastrointestinal tract irritation [Recovered/Resolved]
  - Abdominal distension [Recovering/Resolving]
  - Pain [Recovering/Resolving]
  - Influenza [Recovered/Resolved]
  - Nasopharyngitis [Unknown]
  - Chills [Unknown]
  - Crying [Unknown]
  - Cough [Recovered/Resolved]
  - Throat irritation [Recovering/Resolving]
  - Blood glucose fluctuation [Not Recovered/Not Resolved]
  - Bronchitis [Recovered/Resolved]
  - Oropharyngeal pain [Recovered/Resolved]
  - Constipation [Recovering/Resolving]
  - Gastrooesophageal reflux disease [Recovered/Resolved]
  - Off label use [Unknown]
  - Peripheral swelling [Recovering/Resolving]
  - Joint swelling [Recovering/Resolving]
  - Product packaging issue [Unknown]

NARRATIVE: CASE EVENT DATE: 20230701
